FAERS Safety Report 17852433 (Version 2)
Quarter: 2020Q2

REPORT INFORMATION
  Report Type: Report from Study
  Country: US (occurrence: US)
  Receive Date: 20200602
  Receipt Date: 20200608
  Transmission Date: 20200714
  Serious: Yes (Death, Hospitalization)
  Sender: FDA-Public Use
  Company Number: US-ACTELION-A-US2014-109930

PATIENT
  Age: 36 Year
  Sex: Female
  Weight: 45.35 kg

DRUGS (10)
  1. ADCIRCA [Concomitant]
     Active Substance: TADALAFIL
  2. VELETRI [Suspect]
     Active Substance: EPOPROSTENOL
     Indication: PULMONARY ARTERIAL HYPERTENSION
     Dosage: 20 NG/KG, PER MIN
     Route: 042
     Dates: end: 20200519
  3. VELETRI [Suspect]
     Active Substance: EPOPROSTENOL
     Dosage: 2 NG/KG, PER MIN
     Route: 042
  4. VELETRI [Suspect]
     Active Substance: EPOPROSTENOL
     Dosage: 5 NG/KG, PER MIN
     Route: 042
     Dates: start: 20141210
  5. TADALAFIL. [Concomitant]
     Active Substance: TADALAFIL
  6. LETAIRIS [Suspect]
     Active Substance: AMBRISENTAN
     Dosage: 5 MG, QD
     Route: 048
     Dates: start: 20160428
  7. COUMADIN [Concomitant]
     Active Substance: WARFARIN SODIUM
  8. VELETRI [Suspect]
     Active Substance: EPOPROSTENOL
     Dosage: 18 NG/KG, PER MIN
     Route: 042
  9. LETAIRIS [Suspect]
     Active Substance: AMBRISENTAN
     Indication: PRODUCT USED FOR UNKNOWN INDICATION
     Dosage: 10 MG, QD
     Route: 065
  10. VELETRI [Suspect]
     Active Substance: EPOPROSTENOL
     Dosage: 15 NG/KG, PER MIN
     Route: 042

REACTIONS (27)
  - Abdominal pain upper [Recovered/Resolved]
  - Sinusitis [Unknown]
  - Nasopharyngitis [Unknown]
  - Burning sensation [Not Recovered/Not Resolved]
  - Rash [Unknown]
  - Lower respiratory tract infection [Unknown]
  - Enterovirus infection [Recovering/Resolving]
  - Chest pain [Recovering/Resolving]
  - Decreased appetite [Recovered/Resolved]
  - Pain in jaw [Recovered/Resolved]
  - Myalgia [Unknown]
  - Headache [Unknown]
  - Toothache [Recovered/Resolved]
  - Muscle spasms [Recovered/Resolved]
  - Migraine [Recovered/Resolved]
  - Angina pectoris [Unknown]
  - Dyspnoea exertional [Unknown]
  - Gastric disorder [Unknown]
  - Dyspnoea [Unknown]
  - Pulmonary embolism [Fatal]
  - Flushing [Recovered/Resolved]
  - Diarrhoea [Recovering/Resolving]
  - Pneumonia [Unknown]
  - Anaemia [Unknown]
  - Chest discomfort [Unknown]
  - Right ventricular failure [Unknown]
  - Nasal congestion [Unknown]

NARRATIVE: CASE EVENT DATE: 20160505
